FAERS Safety Report 7637419-1 (Version None)
Quarter: 2011Q3

REPORT INFORMATION
  Report Type: 
  Country: None (occurrence: None)
  Receive Date: 20110726
  Receipt Date: 20110719
  Transmission Date: 20111222
  Serious: Yes (Other)
  Sender: FDA-Public Use
  Company Number: US-PFIZER INC-2011137327

PATIENT
  Sex: Male
  Weight: 86.168 kg

DRUGS (10)
  1. LIPITOR [Concomitant]
     Indication: BLOOD CHOLESTEROL INCREASED
     Dosage: 40 MG, DAILY
  2. FOLIC ACID [Concomitant]
     Dosage: 400 UG, 1X/DAY
     Route: 048
  3. VIAGRA [Suspect]
     Dosage: 25 MG, 1X/DAY
     Route: 048
     Dates: end: 20110527
  4. ACETYLSALICYLIC ACID [Concomitant]
     Indication: CARDIOVASCULAR EVENT PROPHYLAXIS
     Dosage: 81 MG, DAILY
     Route: 048
  5. METAMUCIL-2 [Concomitant]
     Dosage: 3 G, 2X/DAY
     Route: 048
  6. VIAGRA [Suspect]
     Indication: ERECTILE DYSFUNCTION
     Dosage: 100 MG, UNK
     Route: 048
     Dates: start: 20110527
  7. ATENOLOL [Concomitant]
     Indication: SUPRAVENTRICULAR EXTRASYSTOLES
     Dosage: 50 MG, DAILY
     Route: 048
  8. PRILOSEC [Concomitant]
     Indication: GASTROOESOPHAGEAL REFLUX DISEASE
     Dosage: 20 MG, DAILY
     Route: 048
  9. MULTIVITAMIN [Concomitant]
     Dosage: 1
     Route: 048
  10. LUTEIN [Concomitant]
     Dosage: 12 MG, 1X/DAY

REACTIONS (1)
  - TRANSIENT GLOBAL AMNESIA [None]
